FAERS Safety Report 10901638 (Version 7)
Quarter: 2016Q4

REPORT INFORMATION
  Report Type: Spontaneous
  Country: US (occurrence: US)
  Receive Date: 20150310
  Receipt Date: 20161114
  Transmission Date: 20170206
  Serious: Yes (Other)
  Sender: FDA-Public Use
  Company Number: US-PFIZER INC-2015082252

PATIENT
  Age: 82 Year
  Sex: Male
  Weight: 95 kg

DRUGS (13)
  1. NEURONTIN [Suspect]
     Active Substance: GABAPENTIN
     Indication: SPINAL PAIN
  2. NEURONTIN [Suspect]
     Active Substance: GABAPENTIN
     Indication: NEURALGIA
  3. DEXALIN [Concomitant]
     Indication: GASTRIC DISORDER
     Dosage: UNK
  4. OCUVITE PRESERVISION [Concomitant]
     Dosage: UNK
  5. COENZYME Q10 [Concomitant]
     Active Substance: UBIDECARENONE
     Indication: BLOOD CHOLESTEROL ABNORMAL
     Dosage: 200 MG, UNK
  6. TUMERIC [Concomitant]
     Active Substance: TURMERIC
     Dosage: UNK
  7. VITAMIN D [Concomitant]
     Active Substance: CHOLECALCIFEROL
     Dosage: UNK
  8. NEURONTIN [Suspect]
     Active Substance: GABAPENTIN
     Indication: NEURALGIA
  9. NEURONTIN [Suspect]
     Active Substance: GABAPENTIN
     Indication: PAIN IN EXTREMITY
     Dosage: 300 MG, 3X/DAY
     Route: 048
     Dates: start: 2013
  10. NEURONTIN [Suspect]
     Active Substance: GABAPENTIN
     Indication: BACK PAIN
  11. VITAMIN C [Concomitant]
     Active Substance: ASCORBIC ACID
  12. HYTRIN [Concomitant]
     Active Substance: TERAZOSIN HYDROCHLORIDE
     Indication: PROSTATIC DISORDER
     Dosage: UNK
  13. FISH OIL [Concomitant]
     Active Substance: FISH OIL
     Indication: BLOOD CHOLESTEROL ABNORMAL
     Dosage: UNK

REACTIONS (4)
  - Feeling abnormal [Unknown]
  - Optic nerve injury [Unknown]
  - Drug ineffective for unapproved indication [Unknown]
  - Back disorder [Unknown]
